FAERS Safety Report 12896643 (Version 1)
Quarter: 2016Q4

REPORT INFORMATION
  Report Type: Spontaneous
  Country: GB (occurrence: GB)
  Receive Date: 20161031
  Receipt Date: 20161031
  Transmission Date: 20170207
  Serious: Yes (Other)
  Sender: FDA-Public Use
  Company Number: GB-GLAXOSMITHKLINE-GB2016158258

PATIENT
  Age: 63 Year
  Sex: Female
  Weight: 61.68 kg

DRUGS (3)
  1. METHOTREXATE. [Concomitant]
     Active Substance: METHOTREXATE
     Dosage: UNK
  2. TEGRETOL [Concomitant]
     Active Substance: CARBAMAZEPINE
     Dosage: UNK
  3. ZOVIRAX [Suspect]
     Active Substance: ACYCLOVIR
     Indication: CONJUNCTIVITIS VIRAL
     Dosage: 1 GTT, UNK, 3 DROPS A DAY. I TOOK ONE DROP.
     Route: 047
     Dates: start: 20160916, end: 20160916

REACTIONS (3)
  - Eye pain [Recovered/Resolved]
  - Eye discharge [Recovered/Resolved]
  - Vision blurred [Recovered/Resolved]

NARRATIVE: CASE EVENT DATE: 20160916
